FAERS Safety Report 9444642 (Version 2)
Quarter: 2014Q1

REPORT INFORMATION
  Report Type: Spontaneous
  Country: US (occurrence: US)
  Receive Date: 20130807
  Receipt Date: 20140210
  Transmission Date: 20141002
  Serious: Yes (Other)
  Sender: FDA-Public Use
  Company Number: US-BAYER-2013-094759

PATIENT
  Age: 37 Year
  Sex: Female

DRUGS (17)
  1. YAZ [Suspect]
  2. YASMIN [Suspect]
  3. ZOLOFT [Concomitant]
     Indication: PREMENSTRUAL DYSPHORIC DISORDER
     Dosage: 50 MG, UNK
     Route: 048
  4. ZOLOFT [Concomitant]
     Indication: PREMENSTRUAL DYSPHORIC DISORDER
     Dosage: 50 TO 150 MG DAILY
  5. LYRICA [Concomitant]
     Indication: FIBROMYALGIA
     Dosage: 50 MG, BID
     Route: 048
  6. IMITREX [Concomitant]
     Indication: HEADACHE
     Dosage: 100 MG, PRN
  7. OXYCODONE/APAP [Concomitant]
     Dosage: 5-325 MG TABLETS, 45 DISPENSED
  8. REGLAN [Concomitant]
     Indication: ABDOMINAL PAIN UPPER
     Dosage: 10 MG, UNK
  9. REGLAN [Concomitant]
     Indication: ABDOMINAL PAIN UPPER
     Dosage: 5 MG, DAILY OR TWICE DAILY AS NEEDED
     Route: 048
  10. TRIAMCINOLONE [Concomitant]
     Indication: BACK PAIN
     Dosage: 120 MG, UNK
     Route: 008
     Dates: start: 20080415
  11. MARCAINE [Concomitant]
     Indication: BACK PAIN
     Dosage: 3 ML, UNK
     Route: 008
     Dates: start: 20080415
  12. FENTANYL [Concomitant]
     Dosage: 12 ?G/H, EVERY 3 DAYS
  13. MORPHINE [Concomitant]
     Dosage: 10 MG / 5 ML
  14. CYTOTEC [Concomitant]
     Dosage: 200 ?G, 2 TABLETS TAKEN 8 HOURS APART PRIOR TO PAP
  15. ZITHROMAX [Concomitant]
     Dosage: 500 MG, UNK
  16. FLONASE [Concomitant]
     Dosage: 2 SPRAYS EACH NOSTRIL DAILY, WEAN AS RECOMMENDED
     Route: 045
  17. OMEPRAZOLE [Concomitant]
     Dosage: 20 MG, BID
     Route: 048
     Dates: end: 20080512

REACTIONS (6)
  - Venous thrombosis [None]
  - Cholecystitis [None]
  - Thrombophlebitis superficial [None]
  - Deep vein thrombosis [None]
  - Injury [None]
  - Emotional distress [None]
